FAERS Safety Report 25712143 (Version 1)
Quarter: 2025Q3

REPORT INFORMATION
  Report Type: Spontaneous
  Country: US (occurrence: US)
  Receive Date: 20250821
  Receipt Date: 20250821
  Transmission Date: 20251021
  Serious: Yes (Hospitalization)
  Sender: XERIS PHARMACEUTICALS
  Company Number: US-BRIAN CONNER SVP QUALITY AND CHIEF COMPLIANCE OFFICER-2025XER00584

PATIENT
  Sex: Male
  Weight: 24.494 kg

DRUGS (6)
  1. GVOKE [Suspect]
     Active Substance: GLUCAGON
     Indication: Type 1 diabetes mellitus
     Route: 058
     Dates: start: 20250808
  2. GVOKE [Suspect]
     Active Substance: GLUCAGON
     Indication: Seizure
  3. INSULIN NOS [Concomitant]
     Active Substance: INSULIN NOS
  4. DEXMETHYLPHENIDATE [Concomitant]
     Active Substance: DEXMETHYLPHENIDATE
  5. CLONIDINE [Concomitant]
     Active Substance: CLONIDINE
  6. ALBUTEROL [Concomitant]
     Active Substance: ALBUTEROL

REACTIONS (7)
  - Somnolence [Recovered/Resolved]
  - Decreased appetite [Recovered/Resolved]
  - Blood sodium decreased [Unknown]
  - Protein total increased [Unknown]
  - Aspartate aminotransferase increased [Unknown]
  - Blood potassium decreased [Unknown]
  - Drug ineffective [Unknown]

NARRATIVE: CASE EVENT DATE: 20250101
